FAERS Safety Report 19189119 (Version 2)
Quarter: 2021Q3

REPORT INFORMATION
  Report Type: Spontaneous
  Country: US (occurrence: US)
  Receive Date: 20210428
  Receipt Date: 20210729
  Transmission Date: 20211014
  Serious: No
  Sender: FDA-Public Use
  Company Number: US-ULTRAGENYX PHARMACEUTICAL INC.-US-UGNX-21-00081

PATIENT
  Age: 23 Year
  Sex: Male

DRUGS (3)
  1. DOJOLVI [Suspect]
     Active Substance: TRIHEPTANOIN
  2. DOJOLVI [Suspect]
     Active Substance: TRIHEPTANOIN
  3. DOJOLVI [Suspect]
     Active Substance: TRIHEPTANOIN
     Indication: CARNITINE PALMITOYLTRANSFERASE DEFICIENCY
     Route: 048
     Dates: start: 20210309

REACTIONS (4)
  - Chest discomfort [Unknown]
  - Abdominal pain upper [Recovered/Resolved]
  - Product preparation issue [Unknown]
  - Abdominal discomfort [Recovering/Resolving]

NARRATIVE: CASE EVENT DATE: 20210329
